APPROVED DRUG PRODUCT: RISPERIDONE
Active Ingredient: RISPERIDONE
Strength: 1MG
Dosage Form/Route: TABLET;ORAL
Application: A076228 | Product #003
Applicant: HERITAGE PHARMA LABS INC DBA AVET PHARMACEUTICALS LABS INC
Approved: Jun 30, 2008 | RLD: No | RS: No | Type: DISCN